FAERS Safety Report 20926003 (Version 1)
Quarter: 2022Q2

REPORT INFORMATION
  Report Type: Spontaneous
  Country: US (occurrence: None)
  Receive Date: 20220607
  Receipt Date: 20220607
  Transmission Date: 20220721
  Serious: Yes (Hospitalization)
  Sender: FDA-Public Use
  Company Number: None

PATIENT
  Age: 71 Year
  Sex: Male

DRUGS (1)
  1. AVONEX [Suspect]
     Active Substance: INTERFERON BETA-1A
     Indication: Multiple sclerosis
     Dosage: 30MCG ONCE WEEKLY INTRAMUSCULAR
     Route: 030
     Dates: start: 20130129

REACTIONS (2)
  - Bacterial infection [None]
  - Therapy interrupted [None]

NARRATIVE: CASE EVENT DATE: 20220530
